FAERS Safety Report 6382461-4 (Version None)
Quarter: 2009Q3

REPORT INFORMATION
  Report Type: 
  Country: None (occurrence: None)
  Receive Date: 20090924
  Receipt Date: 20090519
  Transmission Date: 20100115
  Serious: Yes (Hospitalization)
  Sender: FDA-Public Use
  Company Number: WAES 0905USA02486

PATIENT
  Age: 47 Year
  Sex: Male

DRUGS (4)
  1. VYTORIN [Suspect]
     Indication: BLOOD CHOLESTEROL
     Dosage: PO
     Route: 048
     Dates: end: 20090518
  2. EXFORGE [Concomitant]
  3. HUMALOG [Concomitant]
  4. LISINOPRIL [Concomitant]

REACTIONS (3)
  - BLOOD CREATINE PHOSPHOKINASE INCREASED [None]
  - FATIGUE [None]
  - MYALGIA [None]
